FAERS Safety Report 5363145-8 (Version None)
Quarter: 2007Q2

REPORT INFORMATION
  Report Type: 
  Country: None (occurrence: None)
  Receive Date: 20070620
  Receipt Date: 20070618
  Transmission Date: 20071010
  Serious: Yes (Other)
  Sender: FDA-Public Use
  Company Number: HQWYE817904AUG04

PATIENT
  Sex: Female
  Weight: 136.2 kg

DRUGS (3)
  1. PREMPRO [Suspect]
     Indication: HORMONE REPLACEMENT THERAPY
     Dosage: 0.625/2.5 MG
     Route: 048
     Dates: start: 19970101, end: 20010101
  2. PROVERA [Suspect]
     Dosage: 2.5MG
     Route: 048
     Dates: start: 19960101, end: 19970101
  3. PREMARIN [Suspect]
     Dosage: UNSPECIFIED
     Route: 048
     Dates: start: 19960101, end: 19970101

REACTIONS (1)
  - BREAST CANCER METASTATIC [None]
